FAERS Safety Report 12887092 (Version 1)
Quarter: 2016Q4

REPORT INFORMATION
  Report Type: Spontaneous
  Country: BR (occurrence: BR)
  Receive Date: 20161026
  Receipt Date: 20161026
  Transmission Date: 20170207
  Serious: Yes (Hospitalization, Other)
  Sender: FDA-Public Use
  Company Number: BR-GLAXOSMITHKLINE-BR2016GSK156034

PATIENT
  Sex: Male
  Weight: 16 kg

DRUGS (10)
  1. AEROLIN [Suspect]
     Active Substance: ALBUTEROL
     Indication: COUGH
     Dosage: 4 PUFF(S), TID
     Route: 055
  2. HIXIZINE (HYDROXYZINE) [Concomitant]
     Indication: COUGH
     Dosage: 3.5 ML, QD
     Route: 048
  3. HIXIZINE (HYDROXYZINE) [Concomitant]
     Indication: FATIGUE
  4. AEROLIN NEBULES [Suspect]
     Active Substance: ALBUTEROL SULFATE
     Indication: FATIGUE
  5. PREDSIM (PREDNISOLONE) [Concomitant]
     Indication: FATIGUE
  6. FLIXOTIDE (CFC-FREE) [Suspect]
     Active Substance: FLUTICASONE PROPIONATE
     Indication: BRONCHITIS
     Dosage: 2 PUFF(S), BID
     Dates: start: 201606
  7. PREDSIM (PREDNISOLONE) [Concomitant]
     Indication: COUGH
     Dosage: 4 ML, QD
     Route: 048
  8. HIXIZINE (HYDROXYZINE) [Concomitant]
     Indication: HYPERSENSITIVITY
  9. AEROLIN [Suspect]
     Active Substance: ALBUTEROL
     Indication: FATIGUE
  10. AEROLIN NEBULES [Suspect]
     Active Substance: ALBUTEROL SULFATE
     Indication: PRODUCTIVE COUGH
     Route: 055

REACTIONS (8)
  - Cough [Recovering/Resolving]
  - Fatigue [Recovering/Resolving]
  - Oxygen consumption decreased [Unknown]
  - Bronchitis [Unknown]
  - Insomnia [Recovering/Resolving]
  - Hypersensitivity [Unknown]
  - Drug ineffective [Unknown]
  - Respiratory failure [Unknown]
